FAERS Safety Report 8461274-3 (Version None)
Quarter: 2012Q2

REPORT INFORMATION
  Report Type: 
  Country: None (occurrence: None)
  Receive Date: 20120625
  Receipt Date: 20120611
  Transmission Date: 20120825
  Serious: Yes (Other)
  Sender: FDA-Public Use
  Company Number: DE-JNJFOC-20120611162

PATIENT
  Age: 64 Year
  Sex: Female
  Weight: 61 kg

DRUGS (7)
  1. ASPIRIN [Concomitant]
     Indication: CARDIOVASCULAR DISORDER
     Dates: start: 19920630
  2. METOPROLOL TARTRATE [Concomitant]
     Indication: HYPERTENSION
     Dates: start: 19930101
  3. BERODUAL N [Concomitant]
     Indication: BRONCHITIS CHRONIC
     Dates: start: 19930101
  4. RIVAROXABAN [Suspect]
     Indication: THROMBOPHLEBITIS SUPERFICIAL
     Route: 048
     Dates: start: 20120525, end: 20120610
  5. LOPERAMIDE [Concomitant]
     Indication: ABDOMINAL DISCOMFORT
     Dates: start: 19930101
  6. FLUTICASONE PROPIONATE/SALMETEROL [Concomitant]
     Indication: BRONCHITIS CHRONIC
     Dates: start: 19930101
  7. TROMPHYLLIN [Concomitant]
     Indication: BRONCHITIS CHRONIC
     Dates: start: 19930101

REACTIONS (2)
  - HAEMORRHAGIC DISORDER [None]
  - HYPERSENSITIVITY [None]
